FAERS Safety Report 16936672 (Version 6)
Quarter: 2019Q4

REPORT INFORMATION
  Report Type: Report from Study
  Country: US (occurrence: US)
  Receive Date: 20191018
  Receipt Date: 20191127
  Transmission Date: 20200122
  Serious: Yes (Hospitalization)
  Sender: FDA-Public Use
  Company Number: PHHY2019US071021

PATIENT
  Age: 13 Year
  Sex: Male
  Weight: 39.1 kg

DRUGS (23)
  1. AZITHROMYCIN ANHYDROUS. [Concomitant]
     Active Substance: AZITHROMYCIN ANHYDROUS
     Indication: LOWER RESPIRATORY TRACT INFECTION
     Dosage: 500 MG, UNK
     Route: 065
  2. LINEZOLID. [Concomitant]
     Active Substance: LINEZOLID
     Indication: LOWER RESPIRATORY TRACT INFECTION
     Dosage: 600 MG, UNK
     Route: 065
     Dates: end: 20190922
  3. TOBI [Concomitant]
     Active Substance: TOBRAMYCIN
     Indication: LOWER RESPIRATORY TRACT INFECTION
  4. SODIUM CHLORIDE ^ACO^ [Concomitant]
     Indication: PRODUCT USED FOR UNKNOWN INDICATION
     Dosage: 4 ML, BID
     Route: 055
     Dates: start: 20191028
  5. ZENPEP [Concomitant]
     Active Substance: PANCRELIPASE AMYLASE\PANCRELIPASE LIPASE\PANCRELIPASE PROTEASE
     Indication: PRODUCT USED FOR UNKNOWN INDICATION
     Dosage: UNK
     Route: 048
     Dates: start: 20191028
  6. SYNERA [Concomitant]
     Active Substance: LIDOCAINE\TETRACAINE
     Indication: PRODUCT USED FOR UNKNOWN INDICATION
     Dosage: 1 DF, PRN
     Route: 061
  7. TOBI [Concomitant]
     Active Substance: TOBRAMYCIN
     Indication: PSEUDOMONAS INFECTION
     Dosage: 300 MG, BID
     Route: 055
     Dates: start: 20191028
  8. CAYSTON [Concomitant]
     Active Substance: AZTREONAM
     Indication: PSEUDOMONAS INFECTION
     Dosage: UNK
     Route: 065
     Dates: start: 2014, end: 201904
  9. ALBUTEROL. [Concomitant]
     Active Substance: ALBUTEROL
     Indication: PRODUCT USED FOR UNKNOWN INDICATION
     Dosage: 90 UG, UNK
     Route: 065
  10. AZITHROMYCIN ANHYDROUS. [Concomitant]
     Active Substance: AZITHROMYCIN ANHYDROUS
     Indication: ANTIBIOTIC THERAPY
     Dosage: UNK (LAST DOSE ON 22 MAY 2019)
     Route: 048
     Dates: start: 20190226
  11. MAXIPIME [Concomitant]
     Active Substance: CEFEPIME HYDROCHLORIDE
     Indication: PRODUCT USED FOR UNKNOWN INDICATION
     Dosage: 2000 MG, Q8H
     Route: 065
     Dates: start: 20191028
  12. TYLENOL [Concomitant]
     Active Substance: ACETAMINOPHEN
     Indication: PRODUCT USED FOR UNKNOWN INDICATION
     Dosage: 500 MG, Q4H
     Route: 048
     Dates: start: 20191028
  13. HUMALOG [Concomitant]
     Active Substance: INSULIN LISPRO
     Indication: PRODUCT USED FOR UNKNOWN INDICATION
     Dosage: 1 DF, QD
     Route: 065
     Dates: start: 20191028
  14. AMIKACIN SULFATE AND SODIUM CHLORIDE [Concomitant]
     Indication: LOWER RESPIRATORY TRACT INFECTION
     Dosage: 90 ML, Q24H
     Route: 042
     Dates: start: 20191028
  15. VIBRAMYCIN [Concomitant]
     Active Substance: DOXYCYCLINE
     Indication: PRODUCT USED FOR UNKNOWN INDICATION
     Dosage: 100 MG, BID
     Route: 048
     Dates: start: 20091028
  16. EMLA [Concomitant]
     Active Substance: LIDOCAINE\PRILOCAINE
     Indication: PRODUCT USED FOR UNKNOWN INDICATION
     Dosage: 1 DF, PRN
     Route: 061
     Dates: start: 20191028
  17. LAMPRENE [Suspect]
     Active Substance: CLOFAZIMINE
     Dosage: 50 MG, QD
     Route: 048
     Dates: start: 20190711
  18. LAMPRENE [Suspect]
     Active Substance: CLOFAZIMINE
     Dosage: 50 MG, QD
     Route: 048
     Dates: start: 20190922
  19. DORNASE ALFA. [Concomitant]
     Active Substance: DORNASE ALFA
     Indication: PRODUCT USED FOR UNKNOWN INDICATION
     Dosage: 2.5 MG, BID
     Route: 055
     Dates: start: 20191028
  20. LANTUS [Concomitant]
     Active Substance: INSULIN GLARGINE
     Indication: PRODUCT USED FOR UNKNOWN INDICATION
     Dosage: 12 U, QHS
     Route: 065
     Dates: start: 20191028
  21. LAMPRENE [Suspect]
     Active Substance: CLOFAZIMINE
     Dosage: 100 MG, QD
     Route: 048
     Dates: start: 20190304, end: 20190311
  22. LAMPRENE [Suspect]
     Active Substance: CLOFAZIMINE
     Indication: MYCOBACTERIUM ABSCESSUS INFECTION
     Dosage: 100 MG, QD
     Route: 048
     Dates: start: 20190208, end: 20190213
  23. LINEZOLID. [Concomitant]
     Active Substance: LINEZOLID
     Indication: ANTIBIOTIC THERAPY
     Dosage: 300 MG, BID
     Route: 048
     Dates: start: 20191028

REACTIONS (14)
  - Infective pulmonary exacerbation of cystic fibrosis [Not Recovered/Not Resolved]
  - Haemoptysis [Recovered/Resolved]
  - Pyrexia [Recovered/Resolved]
  - Pyrexia [Recovered/Resolved]
  - Sputum increased [Not Recovered/Not Resolved]
  - Abdominal pain [Not Recovered/Not Resolved]
  - Sputum discoloured [Unknown]
  - Aspartate aminotransferase increased [Recovered/Resolved]
  - Cough [Not Recovered/Not Resolved]
  - Pulmonary mass [Unknown]
  - Pyrexia [Recovering/Resolving]
  - Pulmonary function test decreased [Not Recovered/Not Resolved]
  - Weight decreased [Not Recovered/Not Resolved]
  - Cough [Recovered/Resolved]

NARRATIVE: CASE EVENT DATE: 20190326
